FAERS Safety Report 7627733-8 (Version None)
Quarter: 2011Q3

REPORT INFORMATION
  Report Type: 
  Country: None (occurrence: None)
  Receive Date: 20110721
  Receipt Date: 20110720
  Transmission Date: 20111222
  Serious: Yes (Hospitalization, Disabling)
  Sender: FDA-Public Use
  Company Number: US-PFIZER INC-2011083597

PATIENT
  Sex: Male
  Weight: 63 kg

DRUGS (10)
  1. SPIRIVA [Concomitant]
     Indication: DYSPNOEA
     Dosage: UNK
  2. LEVOTHYROXINE [Concomitant]
     Indication: THYROID DISORDER
     Dosage: 50 UG, UNK
  3. OXYCODONE [Concomitant]
     Dosage: 30 MG, UNK
  4. TRAZODONE [Concomitant]
     Indication: INSOMNIA
     Dosage: UNK
  5. CHANTIX [Suspect]
     Dosage: UNK
  6. XANAX [Concomitant]
     Dosage: 1 MG, 4X/DAY
  7. FENTANYL [Concomitant]
     Dosage: 100 MG, ONCE IN 48 HOURS
  8. PROTONIX [Suspect]
     Indication: GASTROOESOPHAGEAL REFLUX DISEASE
     Dosage: UNK
  9. PANTOPRAZOLE [Suspect]
     Indication: GASTROOESOPHAGEAL REFLUX DISEASE
  10. METHOCARBAMOL [Concomitant]
     Dosage: 750 MG, 3X/DAY

REACTIONS (3)
  - INTERVERTEBRAL DISC DISORDER [None]
  - MUSCULOSKELETAL DISCOMFORT [None]
  - MALAISE [None]
